FAERS Safety Report 4684187-1 (Version None)
Quarter: 2005Q2

REPORT INFORMATION
  Report Type: 
  Country: None (occurrence: None)
  Receive Date: 20050607
  Receipt Date: 20050518
  Transmission Date: 20051028
  Serious: Yes (Hospitalization)
  Sender: FDA-Public Use
  Company Number: ES-GLAXOSMITHKLINE-B0382061A

PATIENT
  Age: 8 Year
  Sex: Female

DRUGS (2)
  1. AUGMENTIN [Suspect]
     Indication: PHARYNGOTONSILLITIS
     Route: 048
     Dates: start: 20050514, end: 20050518
  2. ANTIBIOTIC [Concomitant]
     Indication: DRUG USE FOR UNKNOWN INDICATION

REACTIONS (5)
  - ABDOMINAL PAIN [None]
  - DIARRHOEA [None]
  - PYELONEPHRITIS [None]
  - PYREXIA [None]
  - VOMITING [None]
